FAERS Safety Report 8581344-9 (Version None)
Quarter: 2012Q3

REPORT INFORMATION
  Report Type: 
  Country: None (occurrence: None)
  Receive Date: 20120809
  Receipt Date: 20120808
  Transmission Date: 20120928
  Serious: Yes (Death)
  Sender: FDA-Public Use
  Company Number: PHHY2012NL056444

PATIENT
  Sex: Male

DRUGS (14)
  1. FENTANYL [Concomitant]
     Dosage: 30 UG / U
  2. ZOMETA [Suspect]
     Dosage: 4 MG/100 ML 1X PER 28 DAYS
     Dates: start: 20111220
  3. FUROSEMIDE [Concomitant]
     Dosage: 20 MG, UNK
  4. VITAMIN D [Concomitant]
     Dosage: 500 MG, Y00E
  5. METOCLOPRAMIDE [Concomitant]
     Dosage: 2X10MG
  6. PREGABALIN [Concomitant]
     Dosage: 75 MG, UNK
  7. ACETAMINOPHEN [Concomitant]
  8. ETORICOXIB [Concomitant]
     Dosage: 60 MG, UNK
  9. OMEPRAZOLE [Concomitant]
     Dosage: 20 MG, UNK
  10. ZOMETA [Suspect]
     Dosage: 4 MG/100 ML 1X PER 28 DAYS
     Dates: start: 20120214
  11. ZOMETA [Suspect]
     Indication: METASTASES TO BONE
     Dosage: 4 MG/100 ML 1X PER 28 DAYS
     Dates: start: 20111001
  12. HALOPERIDOL [Concomitant]
     Dosage: 5 MG, UNK
  13. ZOMETA [Suspect]
     Dosage: 4 MG/100 ML ONCE EVERY 3 MONTHS
     Dates: start: 20120507
  14. METHYLPHENIDATE HCL [Concomitant]
     Dosage: 2X10MG

REACTIONS (1)
  - METASTASIS [None]
